FAERS Safety Report 13788715 (Version 2)
Quarter: 2018Q4

REPORT INFORMATION
  Report Type: Spontaneous
  Country: US (occurrence: US)
  Receive Date: 20170725
  Receipt Date: 20181120
  Transmission Date: 20190204
  Serious: No
  Sender: FDA-Public Use
  Company Number: US-JNJFOC-20170708054

PATIENT
  Age: 80 Year
  Sex: Male

DRUGS (8)
  1. IMBRUVICA [Suspect]
     Active Substance: IBRUTINIB
     Indication: MANTLE CELL LYMPHOMA
     Route: 048
     Dates: start: 20170511
  2. CRANBERRY. [Concomitant]
     Active Substance: CRANBERRY
  3. TAMSULOSIN [Concomitant]
     Active Substance: TAMSULOSIN
  4. SIMVASTATIN. [Concomitant]
     Active Substance: SIMVASTATIN
  5. ENALAPRIL [Concomitant]
     Active Substance: ENALAPRIL
  6. ASPIRIN. [Concomitant]
     Active Substance: ASPIRIN
  7. GABAPENTIN. [Concomitant]
     Active Substance: GABAPENTIN
  8. MULTIVITAMINS [Concomitant]
     Active Substance: VITAMINS

REACTIONS (2)
  - Onychoclasis [Not Recovered/Not Resolved]
  - Nail disorder [Unknown]

NARRATIVE: CASE EVENT DATE: 20170511
